FAERS Safety Report 7956998-8 (Version None)
Quarter: 2011Q4

REPORT INFORMATION
  Report Type: 
  Country: None (occurrence: None)
  Receive Date: 20111205
  Receipt Date: 20111205
  Transmission Date: 20120403
  Serious: Yes (Other)
  Sender: FDA-Public Use
  Company Number: None

PATIENT
  Sex: Female
  Weight: 56.699 kg

DRUGS (1)
  1. ZOLPIDEM [Suspect]
     Indication: INSOMNIA
     Dosage: 10MG
     Route: 048

REACTIONS (3)
  - SOMNAMBULISM [None]
  - ABNORMAL SLEEP-RELATED EVENT [None]
  - AMNESIA [None]
